FAERS Safety Report 10060383 (Version 1)
Quarter: 2014Q2

REPORT INFORMATION
  Report Type: Spontaneous
  Country: US (occurrence: US)
  Receive Date: 20140404
  Receipt Date: 20140404
  Transmission Date: 20141212
  Serious: No
  Sender: FDA-Public Use
  Company Number: US-B.I. PHARMACEUTICALS,INC./RIDGEFIELD-2014-BI-13171BP

PATIENT
  Sex: Female

DRUGS (1)
  1. VAPRINO [Suspect]
     Indication: IRRITABLE BOWEL SYNDROME
     Dosage: FORMULATION: CAPLETS
     Route: 048

REACTIONS (1)
  - Off label use [Unknown]
